FAERS Safety Report 4330867-7 (Version None)
Quarter: 2004Q1

REPORT INFORMATION
  Report Type: 
  Country: None (occurrence: None)
  Receive Date: 20040331
  Receipt Date: 20040312
  Transmission Date: 20041129
  Serious: Yes (Other)
  Sender: FDA-Public Use
  Company Number: USA040362157

PATIENT
  Age: 74 Year
  Sex: Female
  Weight: 51 kg

DRUGS (3)
  1. FORTEO [Suspect]
     Indication: OSTEOPOROSIS
     Dosage: 20 UG/1 DAY
     Dates: start: 20031016, end: 20040304
  2. CALCIUM WITH VITAMIN D [Concomitant]
  3. IRON [Concomitant]

REACTIONS (6)
  - BLOOD CALCIUM INCREASED [None]
  - CONFUSIONAL STATE [None]
  - DYSGRAPHIA [None]
  - DYSPEPSIA [None]
  - MEMORY IMPAIRMENT [None]
  - SEDATION [None]
